FAERS Safety Report 18582395 (Version 2)
Quarter: 2020Q4

REPORT INFORMATION
  Report Type: Spontaneous
  Country: FR (occurrence: FR)
  Receive Date: 20201205
  Receipt Date: 20201223
  Transmission Date: 20210114
  Serious: Yes (Hospitalization)
  Sender: FDA-Public Use
  Company Number: FR-AUROBINDO-AUR-APL-2020-059584

PATIENT
  Age: 56 Year
  Sex: Male

DRUGS (4)
  1. EUPHON [Concomitant]
     Indication: COUGH
     Dosage: UNK
     Route: 048
  2. FENOFIBRATE. [Concomitant]
     Active Substance: FENOFIBRATE
     Indication: PRODUCT USED FOR UNKNOWN INDICATION
     Dosage: UNK (UNSPECIFIED)
     Route: 065
  3. EUPHON [CODEINE/SISYMBRIUM OFFICINALE] [Suspect]
     Active Substance: CODEINE\HERBALS
     Indication: NASOPHARYNGITIS
     Dosage: 1 SPOON
     Route: 048
     Dates: start: 201910, end: 201910
  4. AMOXICILLIN. [Suspect]
     Active Substance: AMOXICILLIN
     Indication: NASOPHARYNGITIS
     Dosage: UNK (DOSE UNSPECIFIED)
     Route: 065

REACTIONS (4)
  - Malaise [Recovered/Resolved]
  - Anaphylactic reaction [Recovered/Resolved]
  - Urticaria [Recovered/Resolved]
  - Gastrointestinal disorder [Recovered/Resolved]

NARRATIVE: CASE EVENT DATE: 201910
